FAERS Safety Report 12041783 (Version 2)
Quarter: 2016Q1

REPORT INFORMATION
  Report Type: Spontaneous
  Country: NO (occurrence: NO)
  Receive Date: 20160208
  Receipt Date: 20160217
  Transmission Date: 20160526
  Serious: Yes (Other)
  Sender: FDA-Public Use
  Company Number: NO-PFIZER INC-2016058966

PATIENT
  Sex: Female

DRUGS (7)
  1. MECILLINAM [Suspect]
     Active Substance: AMDINOCILLIN
     Route: 064
  2. PARACETAMOL [Suspect]
     Active Substance: ACETAMINOPHEN
     Route: 064
  3. MORPHINE SULFATE. [Suspect]
     Active Substance: MORPHINE SULFATE
     Route: 064
  4. SYMBICORT [Suspect]
     Active Substance: BUDESONIDE\FORMOTEROL FUMARATE DIHYDRATE
     Route: 064
  5. DICLOFENAC [Suspect]
     Active Substance: DICLOFENAC
     Route: 064
  6. DICLOFENAC [Suspect]
     Active Substance: DICLOFENAC
     Route: 064
  7. PARACETAMOL [Suspect]
     Active Substance: ACETAMINOPHEN
     Route: 064

REACTIONS (10)
  - Ascites [Recovered/Resolved]
  - Tricuspid valve incompetence [Recovered/Resolved]
  - Congenital pulmonary hypertension [Recovered/Resolved]
  - Ductus arteriosus premature closure [Recovered/Resolved]
  - Foetal heart rate abnormal [Recovered/Resolved]
  - Generalised oedema [Recovered/Resolved]
  - Live birth [Unknown]
  - Maternal exposure during pregnancy [Unknown]
  - Cyanosis [Recovered/Resolved]
  - Right ventricular failure [Recovered/Resolved]
